FAERS Safety Report 21663689 (Version 1)
Quarter: 2022Q4

REPORT INFORMATION
  Report Type: Spontaneous
  Country: CA (occurrence: CA)
  Receive Date: 20221130
  Receipt Date: 20221130
  Transmission Date: 20230113
  Serious: Yes (Disabling)
  Sender: FDA-Public Use
  Company Number: None

PATIENT
  Age: 33 Year
  Sex: Female
  Weight: 63 kg

DRUGS (1)
  1. ESCITALOPRAM [Suspect]
     Active Substance: ESCITALOPRAM OXALATE
     Indication: Generalised anxiety disorder
     Dosage: STRENGTH: 20 MG
     Route: 048

REACTIONS (4)
  - Anxiety [Recovering/Resolving]
  - Depressive symptom [Recovering/Resolving]
  - Manufacturing materials issue [Unknown]
  - Drug ineffective [Unknown]
